FAERS Safety Report 5629693-8 (Version None)
Quarter: 2008Q1

REPORT INFORMATION
  Report Type: 
  Country: None (occurrence: None)
  Receive Date: 20080214
  Receipt Date: 20080204
  Transmission Date: 20080703
  Serious: Yes (Death)
  Sender: FDA-Public Use
  Company Number: 2008-01092

PATIENT
  Age: 45 Year
  Sex: Male

DRUGS (8)
  1. CARISOPRODOL [Suspect]
  2. DIAZEPAM [Suspect]
  3. OXAZEPAM (WATSON LABORATORIES)(OXAZEPAM)CAPSULE [Suspect]
  4. CLONAZEPAM [Suspect]
  5. HYDROCODONE BITARTRATE/ACETAMINOPHEN UKNOWN STRENGTH (WATSON LABORATOR [Suspect]
  6. OXYCODONE HYDROCHLORIDE/APAP UNKNOWN STRENGTH (WATSON LABORATORIES)(OX [Suspect]
  7. MUSCLE RELAXANT() [Suspect]
  8. BENZODIAZEPINE() [Suspect]

REACTIONS (1)
  - CARDIO-RESPIRATORY ARREST [None]
